FAERS Safety Report 5564662-8 (Version None)
Quarter: 2007Q4

REPORT INFORMATION
  Report Type: 
  Country: None (occurrence: None)
  Receive Date: 20071218
  Receipt Date: 20071210
  Transmission Date: 20080405
  Serious: Yes (Death)
  Sender: FDA-Public Use
  Company Number: FR-ASTRAZENECA-2007SE06654

PATIENT
  Age: 28767 Day
  Sex: Male

DRUGS (5)
  1. KENZEN 8 MG [Suspect]
     Indication: HYPERTENSION
     Route: 048
     Dates: end: 20070811
  2. PREVISCAN [Suspect]
     Indication: ATRIAL FIBRILLATION
     Route: 048
     Dates: end: 20070811
  3. CORDARONE [Suspect]
     Indication: ATRIAL FIBRILLATION
     Route: 048
     Dates: end: 20070811
  4. STILNOX [Suspect]
     Indication: DRUG USE FOR UNKNOWN INDICATION
     Route: 048
     Dates: end: 20070811
  5. ZOCOR [Suspect]
     Indication: DRUG USE FOR UNKNOWN INDICATION
     Route: 048
     Dates: end: 20070811

REACTIONS (5)
  - BRAIN HERNIATION [None]
  - CEREBRAL HAEMATOMA [None]
  - COMA [None]
  - EXTENSOR PLANTAR RESPONSE [None]
  - INTERNATIONAL NORMALISED RATIO INCREASED [None]
